FAERS Safety Report 8888951 (Version 1)
Quarter: 2012Q4

REPORT INFORMATION
  Report Type: 
  Country: AR (occurrence: AR)
  Receive Date: 20121106
  Receipt Date: 20121106
  Transmission Date: 20130627
  Serious: Yes (Hospitalization, Other)
  Sender: FDA-Public Use
  Company Number: PHHY2012AR101523

PATIENT
  Age: 55 Year
  Sex: Female

DRUGS (2)
  1. DIOVAN D [Suspect]
     Indication: HYPERTENSION
     Dosage: 1 tablet (160/12.5mg) daily
     Dates: end: 20121026
  2. DIOVAN D [Suspect]
     Dosage: 1 tablet (160/12.5mg) daily
     Dates: start: 20121028

REACTIONS (2)
  - Fall [Recovering/Resolving]
  - Ankle fracture [Recovering/Resolving]
